FAERS Safety Report 6166627-4 (Version None)
Quarter: 2009Q2

REPORT INFORMATION
  Report Type: 
  Country: None (occurrence: None)
  Receive Date: 20090424
  Receipt Date: 20090414
  Transmission Date: 20091009
  Serious: Yes (Hospitalization)
  Sender: FDA-Public Use
  Company Number: JP-AVENTIS-200914058GDDC

PATIENT
  Age: 86 Year
  Sex: Female

DRUGS (11)
  1. CRAVIT [Suspect]
     Route: 048
     Dates: start: 20090331
  2. LASIX [Suspect]
     Dosage: DOSE: UNKNOWN,  2 IN 1 D
  3. ARTIST [Concomitant]
     Dosage: DOSE: UNKNOWN 1 IN 1 D
  4. LOCHOL                             /01224502/ [Concomitant]
     Dosage: DOSE: UNK
  5. ASPIRIN [Concomitant]
     Dosage: DOSE: UNK
  6. PARIET [Concomitant]
     Dosage: DOSE: UNK, 1 IN 1 D
  7. WARFARIN SODIUM [Concomitant]
     Dosage: DOSE: UNKNOWN 1 IN 1 D
  8. WARFARIN POTASSIUM [Concomitant]
     Dosage: DOSE: UNK, 1 IN 1 D
  9. PURSENNIDE                         /00571902/ [Concomitant]
     Indication: CONSTIPATION
     Dosage: DOSE: UNK, 1 IN 1 D
  10. THYRADIN-S [Concomitant]
     Dosage: DOSE: UNKNOWN, 1 IN 1 D
  11. SODIUM BICARBONATE [Concomitant]
     Dosage: DOSE: UNKNOWN (3 IN 1 D)

REACTIONS (1)
  - RENAL TUBULAR DISORDER [None]
